FAERS Safety Report 8445390-8 (Version None)
Quarter: 2012Q2

REPORT INFORMATION
  Report Type: 
  Country: None (occurrence: None)
  Receive Date: 20120618
  Receipt Date: 20110923
  Transmission Date: 20120825
  Serious: No
  Sender: FDA-Public Use
  Company Number: US-TEVA-2011005087

PATIENT
  Sex: Male
  Weight: 88.53 kg

DRUGS (5)
  1. FENTORA [Suspect]
     Indication: NEURALGIA
     Route: 002
     Dates: start: 20110921
  2. ROXICODONE [Concomitant]
  3. KLONOPIN [Concomitant]
  4. DILAUDID [Concomitant]
  5. ZANAFLEX [Concomitant]

REACTIONS (2)
  - DRUG PRESCRIBING ERROR [None]
  - STOMATITIS [None]
